FAERS Safety Report 15819177 (Version 1)
Quarter: 2019Q1

REPORT INFORMATION
  Report Type: Spontaneous
  Country: US (occurrence: US)
  Receive Date: 20190114
  Receipt Date: 20190114
  Transmission Date: 20190417
  Serious: No
  Sender: FDA-Public Use
  Company Number: US-ROCHE-2224816

PATIENT
  Sex: Female

DRUGS (2)
  1. NUTROPIN AQ [Suspect]
     Active Substance: SOMATROPIN
     Indication: HYPOPITUITARISM
     Dosage: NUTROPIN AQ NUSPIN 20 INJ
     Route: 065
     Dates: start: 20181128
  2. NUTROPIN AQ [Suspect]
     Active Substance: SOMATROPIN
     Dosage: NUSPIN 20 INJ
     Route: 065
     Dates: start: 20181216, end: 20181217

REACTIONS (2)
  - Dysgeusia [Unknown]
  - Ageusia [Unknown]

NARRATIVE: CASE EVENT DATE: 20181201
